FAERS Safety Report 4878517-5 (Version None)
Quarter: 2006Q1

REPORT INFORMATION
  Report Type: 
  Country: None (occurrence: None)
  Receive Date: 20060110
  Receipt Date: 20060110
  Transmission Date: 20060701
  Serious: Yes (Other)
  Sender: FDA-Public Use
  Company Number: None

PATIENT
  Age: 60 Year
  Sex: Male

DRUGS (1)
  1. WARFARIN TABS 5; 5 MG TARO [Suspect]
     Indication: THROMBOSIS
     Dosage: TAKE ONE TABLET DAILY

REACTIONS (1)
  - INTERNATIONAL NORMALISED RATIO ABNORMAL [None]
